FAERS Safety Report 24060910 (Version 1)
Quarter: 2024Q3

REPORT INFORMATION
  Report Type: Spontaneous
  Country: US (occurrence: US)
  Receive Date: 20240708
  Receipt Date: 20240708
  Transmission Date: 20241017
  Serious: Yes (Other)
  Sender: FRESENIUS KABI
  Company Number: US-FreseniusKabi-FK202410136

PATIENT
  Age: 34 Year
  Sex: Female
  Weight: 67 kg

DRUGS (4)
  1. ADALIMUMAB-AACF [Suspect]
     Active Substance: ADALIMUMAB\ADALIMUMAB-AACF\ISOPROPYL ALCOHOL
     Indication: Colitis ulcerative
     Dosage: 40MG EVERY WEEK?EXPIRY ASKED BUT UNKNOWN?ON AN UNREPORTED DATE, THE PATIENT SWITCHED TO AN ALTERNATE
     Route: 058
     Dates: start: 20240101, end: 20240617
  2. DICYCLOMINE [Concomitant]
     Active Substance: DICYCLOMINE HYDROCHLORIDE
     Indication: Product used for unknown indication
     Route: 048
  3. FERROUS SULFATE [Concomitant]
     Active Substance: FERROUS SULFATE
     Indication: Product used for unknown indication
     Route: 048
  4. VITAMINS [Concomitant]
     Active Substance: VITAMINS
     Indication: Product used for unknown indication
     Route: 048

REACTIONS (4)
  - Loss of therapeutic response [Unknown]
  - Fatigue [Unknown]
  - Rash [Unknown]
  - Drug ineffective [Unknown]

NARRATIVE: CASE EVENT DATE: 20240201
